FAERS Safety Report 8320303-8 (Version None)
Quarter: 2012Q2

REPORT INFORMATION
  Report Type: 
  Country: None (occurrence: None)
  Receive Date: 20120430
  Receipt Date: 20120420
  Transmission Date: 20120825
  Serious: No
  Sender: FDA-Public Use
  Company Number: US-PFIZER INC-2012100281

PATIENT
  Sex: Female
  Weight: 74.83 kg

DRUGS (4)
  1. TIGAN [Suspect]
     Dosage: UNK
  2. HYDROCORTISONE [Suspect]
     Dosage: UNK
  3. BENZYLPENICILLIN POTASSIUM [Suspect]
     Dosage: UNK
  4. IODINE [Suspect]
     Dosage: UNK

REACTIONS (1)
  - DRUG HYPERSENSITIVITY [None]
